FAERS Safety Report 12980012 (Version 2)
Quarter: 2016Q4

REPORT INFORMATION
  Report Type: Spontaneous
  Country: US (occurrence: US)
  Receive Date: 20161128
  Receipt Date: 20161208
  Transmission Date: 20170207
  Serious: Yes (Other)
  Sender: FDA-Public Use
  Company Number: US-SA-2016SA214746

PATIENT
  Age: 16 Year
  Sex: Male
  Weight: 77.56 kg

DRUGS (1)
  1. CEREZYME [Suspect]
     Active Substance: IMIGLUCERASE
     Indication: GAUCHER^S DISEASE
     Dosage: DOSE:56.73 UNIT(S)/KILOGRAM BODYWEIGHT
     Route: 042
     Dates: start: 20100401

REACTIONS (2)
  - Hand fracture [Recovered/Resolved]
  - Pyrexia [Unknown]

NARRATIVE: CASE EVENT DATE: 20161007
